FAERS Safety Report 8400910-4 (Version None)
Quarter: 2012Q2

REPORT INFORMATION
  Report Type: 
  Country: None (occurrence: None)
  Receive Date: 20120601
  Receipt Date: 20120521
  Transmission Date: 20120825
  Serious: Yes (Hospitalization)
  Sender: FDA-Public Use
  Company Number: JP-AMGEN-JPNCT2012032994

PATIENT
  Age: 68 Year
  Sex: Female
  Weight: 44 kg

DRUGS (17)
  1. ETANERCEPT [Suspect]
     Dosage: 50 MG, QWK
     Route: 058
     Dates: start: 20101102
  2. FERROUS SODIUM CITRATE [Concomitant]
     Dosage: 50 MG, 1X/DAY
  3. REBAMIPIDE [Concomitant]
     Dosage: 200 MG, 1X/DAY
     Dates: start: 20070629
  4. MISOPROSTOL [Concomitant]
     Dosage: 400 UG, 1X/DAY
     Dates: start: 20090218
  5. KETOPROFEN [Concomitant]
     Dosage: UNK
     Dates: start: 20071018
  6. SULFAMETHOXAZOLE + TRIMETHOPRIM [Concomitant]
     Dosage: 1 DF, 1X/DAY
     Dates: start: 20091216, end: 20111016
  7. BEPOTASTINE BESILATE [Concomitant]
     Dosage: 10 MG, MONTHLY ONCE PER MONTH
     Dates: start: 20101202, end: 20110912
  8. FOLIC ACID [Concomitant]
     Dosage: 50 MG, WEEKLY ONCE PER WEEK
     Dates: start: 20080917, end: 20111004
  9. BUCILLAMINE [Suspect]
     Indication: RHEUMATOID ARTHRITIS
     Dosage: 200 MG, UNK
     Dates: start: 20070629, end: 20111004
  10. OCRELIZUMAB [Suspect]
     Indication: RHEUMATOID ARTHRITIS
     Dosage: 8 MG/KG, MONTHLY
     Route: 042
     Dates: start: 20081022
  11. TOCILIZUMAB [Suspect]
     Indication: RHEUMATOID ARTHRITIS
     Dosage: UNK
     Route: 042
     Dates: start: 20101202
  12. PREDNISOLONE [Concomitant]
     Dosage: 3 MG, 1X/DAY
     Dates: start: 20080627
  13. ECABET [Concomitant]
     Dosage: 3 G, 1X/DAY
     Dates: start: 20070629
  14. LANSOPRAZOLE [Concomitant]
     Dosage: 30 MG, 1X/DAY
     Dates: start: 20090123
  15. ETANERCEPT [Suspect]
     Indication: RHEUMATOID ARTHRITIS
     Dosage: 25 MG, QWK
     Route: 058
     Dates: start: 20101102
  16. METHOTREXATE SODIUM [Suspect]
     Indication: RHEUMATOID ARTHRITIS
     Dosage: 8 MG, WEEKLY
     Dates: start: 20080603, end: 20111004
  17. ADALIMUMAB [Suspect]
     Indication: RHEUMATOID ARTHRITIS
     Dosage: UNK
     Dates: start: 20100825, end: 20101006

REACTIONS (2)
  - LARGE INTESTINE CARCINOMA [None]
  - METASTASES TO LIVER [None]
